FAERS Safety Report 10388889 (Version 1)
Quarter: 2014Q1

REPORT INFORMATION
  Report Type: Spontaneous
  Country: US (occurrence: None)
  Receive Date: 20140306
  Receipt Date: 20140306
  Transmission Date: 20141002
  Serious: Yes (Hospitalization)
  Sender: FDA-Public Use
  Company Number: 163-21880-13070363

PATIENT
  Age: 86 Year
  Sex: Female
  Weight: 48.1 kg

DRUGS (11)
  1. REVLIMID (LENALIDOMIDE) (15 MILLIGRAM, CAPSULES) [Suspect]
     Indication: PLASMA CELL MYELOMA
     Route: 048
     Dates: start: 20130212
  2. DILTIAZEM CD (DILTIAZEM HYDROCHLORIDE) [Concomitant]
  3. TYLENOL (PARACETAMOL) [Concomitant]
  4. ALIGN (BIFIDOBACTERIUM INFANTIS) [Concomitant]
  5. PANTOPRAZOLE SODIUM [Concomitant]
  6. TRAMADOL HCL (TRAMADOL HYDROCHLORIDE) [Concomitant]
  7. MIRTAZAPINE [Concomitant]
  8. ONDANSETRON HCL [Concomitant]
  9. SULFAMETHOXAZOLE-TMP DS (BACTRIM) [Concomitant]
  10. METOPROLOL SUCCINATE [Concomitant]
  11. ALPRAZOLAM [Concomitant]

REACTIONS (2)
  - Deep vein thrombosis [None]
  - Pulmonary embolism [None]
